FAERS Safety Report 20280477 (Version 2)
Quarter: 2022Q1

REPORT INFORMATION
  Report Type: Spontaneous
  Country: JP (occurrence: JP)
  Receive Date: 20220103
  Receipt Date: 20220202
  Transmission Date: 20220423
  Serious: No
  Sender: FDA-Public Use
  Company Number: JP-Merck Healthcare KGaA-9289196

PATIENT

DRUGS (5)
  1. ERBITUX [Suspect]
     Active Substance: CETUXIMAB
     Indication: Colon cancer
     Dosage: UNK UNK, UNKNOWN
     Route: 041
  2. OXALIPLATIN [Concomitant]
     Active Substance: OXALIPLATIN
     Indication: Colon cancer
     Dosage: UNK
  3. TEGAFUR [Concomitant]
     Active Substance: TEGAFUR
     Indication: Colon cancer
     Dosage: UNK
  4. GIMERACIL [Concomitant]
     Active Substance: GIMERACIL
     Indication: Colon cancer
     Dosage: UNK
  5. OTERACIL POTASSIUM [Concomitant]
     Active Substance: OTERACIL POTASSIUM
     Indication: Colon cancer
     Dosage: UNK

REACTIONS (1)
  - Off label use [Unknown]
